FAERS Safety Report 8121231-3 (Version None)
Quarter: 2012Q1

REPORT INFORMATION
  Report Type: 
  Country: None (occurrence: None)
  Receive Date: 20120203
  Receipt Date: 20120120
  Transmission Date: 20120608
  Serious: Yes (Death)
  Sender: FDA-Public Use
  Company Number: US-2012-10068

PATIENT
  Age: 3 Year
  Sex: Female

DRUGS (6)
  1. MELPHALAN HYDROCHLORIDE [Concomitant]
  2. ANTIHYMOCYTE IMMUNOGLOBULIN (ANTIHYMOCYTE IMMUNOGLOBULIN) [Concomitant]
  3. MERCAPTOPURINE [Concomitant]
  4. BUSULFAN [Suspect]
     Indication: BONE MARROW CONDITIONING REGIMEN
  5. CYCLOPHOSPHAMIDE (CYCLOSPHOSAMIDE) [Concomitant]
  6. PREDNISONE TAB [Concomitant]

REACTIONS (9)
  - BONE MARROW FAILURE [None]
  - FLUID OVERLOAD [None]
  - BRADYCARDIA [None]
  - ACUTE RESPIRATORY DISTRESS SYNDROME [None]
  - LEUKAEMIC INFILTRATION PULMONARY [None]
  - LUNG INFILTRATION [None]
  - STREPTOCOCCAL INFECTION [None]
  - RESPIRATORY FAILURE [None]
  - LUNG INFECTION [None]
